FAERS Safety Report 24044090 (Version 1)
Quarter: 2024Q3

REPORT INFORMATION
  Report Type: Spontaneous
  Country: CN (occurrence: CN)
  Receive Date: 20240703
  Receipt Date: 20240703
  Transmission Date: 20241016
  Serious: Yes (Other)
  Sender: UCB
  Company Number: CN-UCBSA-2024020543

PATIENT
  Age: 28 Year
  Sex: Female

DRUGS (2)
  1. CIMZIA [Suspect]
     Active Substance: CERTOLIZUMAB PEGOL
     Indication: Rheumatoid arthritis
     Dosage: 200 MILLIGRAM, ONCE EVERY 20 DAYS
     Route: 058
  2. PREDNISONE ACETATE [Concomitant]
     Active Substance: PREDNISONE ACETATE
     Indication: Rheumatoid arthritis
     Dosage: 1 DOSAGE FORM, 2X/DAY (BID)
     Route: 048

REACTIONS (6)
  - Caesarean section [Unknown]
  - Premature delivery [Unknown]
  - Maternal exposure during breast feeding [Unknown]
  - Off label use [Unknown]
  - Maternal exposure during pregnancy [Unknown]
  - Twin pregnancy [Unknown]

NARRATIVE: CASE EVENT DATE: 20240227
